FAERS Safety Report 14388534 (Version 7)
Quarter: 2018Q2

REPORT INFORMATION
  Report Type: Spontaneous
  Country: US (occurrence: US)
  Receive Date: 20180115
  Receipt Date: 20180427
  Transmission Date: 20180711
  Serious: Yes (Hospitalization, Congenital Anomaly, Other)
  Sender: FDA-Public Use
  Company Number: PHEH2018US000880

PATIENT
  Sex: Female

DRUGS (2)
  1. ZOFRAN ODT [Suspect]
     Active Substance: ONDANSETRON HYDROCHLORIDE
     Indication: FOETAL EXPOSURE DURING PREGNANCY
     Route: 064
  2. ZOFRAN [Suspect]
     Active Substance: ONDANSETRON HYDROCHLORIDE
     Indication: FOETAL EXPOSURE DURING PREGNANCY
     Dosage: MOTHER DOSE: UNK, PRN
     Route: 064

REACTIONS (93)
  - Patent ductus arteriosus [Unknown]
  - Hydronephrosis [Unknown]
  - Failure to thrive [Unknown]
  - Vesicoureteric reflux [Unknown]
  - Malaise [Unknown]
  - Back pain [Unknown]
  - Pain in extremity [Unknown]
  - Ligament sprain [Unknown]
  - Decreased appetite [Unknown]
  - Joint swelling [Unknown]
  - Renal artery stenosis [Unknown]
  - Irritability [Unknown]
  - Viral rash [Unknown]
  - Sciatica [Unknown]
  - Wheezing [Unknown]
  - Rhinitis allergic [Unknown]
  - Swelling face [Unknown]
  - Obesity [Unknown]
  - Joint effusion [Unknown]
  - Hypotonia [Unknown]
  - Motion sickness [Unknown]
  - Dyssomnia [Unknown]
  - Pulmonary artery stenosis congenital [Unknown]
  - Growth hormone deficiency [Unknown]
  - Hypertelorism of orbit [Unknown]
  - Congenital aortic anomaly [Unknown]
  - Gastroenteritis viral [Unknown]
  - Dehydration [Unknown]
  - Seizure [Unknown]
  - Encephalopathy [Unknown]
  - Subcutaneous abscess [Unknown]
  - Cough [Unknown]
  - Depression [Unknown]
  - Somatic dysfunction [Unknown]
  - Snoring [Unknown]
  - Renal disorder [Unknown]
  - Strabismus [Unknown]
  - Cardiac murmur [Unknown]
  - Ventricular septal defect [Unknown]
  - Congenital central nervous system anomaly [Unknown]
  - Atrial septal defect [Unknown]
  - Visual impairment [Unknown]
  - Bundle branch block right [Unknown]
  - Injury [Unknown]
  - Ataxia [Unknown]
  - Weight increased [Unknown]
  - Arnold-Chiari malformation [Unknown]
  - Brain malformation [Unknown]
  - Vascular malformation [Unknown]
  - Right ventricular hypertrophy [Unknown]
  - Pharyngitis [Unknown]
  - Muscle spasms [Unknown]
  - Dizziness [Unknown]
  - Contusion [Unknown]
  - Rhinorrhoea [Unknown]
  - Furuncle [Unknown]
  - Upper respiratory tract infection [Unknown]
  - Conjunctivitis [Unknown]
  - Aorta hypoplasia [Unknown]
  - Optic nerve hypoplasia [Unknown]
  - Congenital adrenal gland hypoplasia [Unknown]
  - Pleural effusion [Unknown]
  - Premature baby [Unknown]
  - Ear infection [Unknown]
  - Pyrexia [Unknown]
  - Rash [Unknown]
  - Insomnia [Unknown]
  - Peripheral nerve lesion [Unknown]
  - Syncope [Unknown]
  - Headache [Unknown]
  - Otitis media acute [Unknown]
  - Limb injury [Unknown]
  - Viral infection [Unknown]
  - Pulmonary valve stenosis congenital [Unknown]
  - Dysmorphism [Unknown]
  - Nasal congestion [Unknown]
  - Polydipsia [Unknown]
  - Fatigue [Unknown]
  - Gait disturbance [Unknown]
  - Impulse-control disorder [Unknown]
  - Heart disease congenital [Unknown]
  - Pituitary hypoplasia [Unknown]
  - Congenital hydrocephalus [Unknown]
  - Developmental delay [Unknown]
  - Intellectual disability [Unknown]
  - Autism spectrum disorder [Unknown]
  - Epilepsy [Unknown]
  - Foetal exposure during pregnancy [Unknown]
  - Pharyngitis streptococcal [Unknown]
  - Arthralgia [Unknown]
  - Eye swelling [Unknown]
  - Eyelid oedema [Unknown]
  - Speech disorder [Unknown]
